FAERS Safety Report 7986987-9 (Version None)
Quarter: 2011Q4

REPORT INFORMATION
  Report Type: 
  Country: None (occurrence: None)
  Receive Date: 20111216
  Receipt Date: 20111207
  Transmission Date: 20120403
  Serious: Yes (Other)
  Sender: FDA-Public Use
  Company Number: US-JNJFOC-20111203240

PATIENT
  Sex: Male
  Weight: 74.84 kg

DRUGS (3)
  1. SIMVASTATIN [Concomitant]
     Indication: BLOOD CHOLESTEROL
     Route: 048
     Dates: start: 20060101
  2. REMICADE [Suspect]
     Indication: PSORIATIC ARTHROPATHY
     Route: 042
     Dates: start: 20090101, end: 20111012
  3. TRAMADOL HCL [Concomitant]
     Indication: PSORIATIC ARTHROPATHY
     Route: 048
     Dates: start: 20060101

REACTIONS (5)
  - RESPIRATORY TRACT CONGESTION [None]
  - BLOOD GLUCOSE DECREASED [None]
  - SINUS CONGESTION [None]
  - OROPHARYNGEAL PAIN [None]
  - TYPE 2 DIABETES MELLITUS [None]
